FAERS Safety Report 19965906 (Version 5)
Quarter: 2022Q2

REPORT INFORMATION
  Report Type: Spontaneous
  Country: US (occurrence: US)
  Receive Date: 20211019
  Receipt Date: 20220530
  Transmission Date: 20220720
  Serious: No
  Sender: FDA-Public Use
  Company Number: US-BRISTOL-MYERS SQUIBB COMPANY-BMS-2021-106546

PATIENT
  Age: 51 Year
  Sex: Male

DRUGS (8)
  1. ELIQUIS [Suspect]
     Active Substance: APIXABAN
     Indication: Pulmonary embolism
     Route: 048
     Dates: start: 20210930, end: 20211116
  2. SYMBICORT [Concomitant]
     Active Substance: BUDESONIDE\FORMOTEROL FUMARATE DIHYDRATE
     Indication: Asthma
     Dosage: 100/4.5 MCG
     Route: 048
     Dates: start: 20200928
  3. COLESTIPOL HYDROCHLORIDE [Concomitant]
     Active Substance: COLESTIPOL HYDROCHLORIDE
     Indication: Hyperlipidaemia
     Dosage: 1 GRAM, BID
     Route: 048
     Dates: start: 20211021
  4. BISTOLIC [Concomitant]
     Indication: Hypertension
     Dosage: 5 MILLIGRAM, QD
     Route: 048
     Dates: start: 20150912
  5. SUNOSI [Concomitant]
     Active Substance: SOLRIAMFETOL
     Indication: Obstructive sleep apnoea syndrome
     Dosage: 75 MILLIGRAM, QD
     Route: 048
     Dates: start: 20210404
  6. COMBIVENT [Concomitant]
     Active Substance: ALBUTEROL SULFATE\IPRATROPIUM BROMIDE
     Indication: Asthma
     Dosage: 20-100 MCG, BID
     Route: 048
     Dates: start: 20211014
  7. NORVASC [Concomitant]
     Active Substance: AMLODIPINE BESYLATE
     Indication: Product used for unknown indication
     Dosage: 5 MILLIGRAM
     Route: 048
  8. LASIX [Concomitant]
     Active Substance: FUROSEMIDE
     Indication: Product used for unknown indication
     Dosage: 40 MILLIGRAM
     Route: 065

REACTIONS (2)
  - Intentional product use issue [Unknown]
  - Tremor [Recovered/Resolved]

NARRATIVE: CASE EVENT DATE: 20210101
